FAERS Safety Report 21392818 (Version 1)
Quarter: 2022Q3

REPORT INFORMATION
  Report Type: Spontaneous
  Country: US (occurrence: US)
  Receive Date: 20220929
  Receipt Date: 20220929
  Transmission Date: 20221027
  Serious: No
  Sender: FDA-Public Use
  Company Number: US-SA-SAC20220928001401

PATIENT
  Age: 60 Year
  Sex: Female
  Weight: 85.7 kg

DRUGS (5)
  1. DUPIXENT [Suspect]
     Active Substance: DUPILUMAB
     Indication: Dermatitis atopic
     Dosage: 300 MG, QOW
     Route: 058
     Dates: start: 20220829
  2. LORATADINE [Concomitant]
     Active Substance: LORATADINE
  3. VITAMINS [Concomitant]
     Active Substance: VITAMINS
     Dosage: QD
  4. ANASTROZOLE [Concomitant]
     Active Substance: ANASTROZOLE
  5. TACROLIMUS [Concomitant]
     Active Substance: TACROLIMUS

REACTIONS (2)
  - Nausea [Unknown]
  - Diarrhoea [Unknown]
